FAERS Safety Report 14739545 (Version 3)
Quarter: 2018Q2

REPORT INFORMATION
  Report Type: Report from Study
  Country: US (occurrence: US)
  Receive Date: 20180410
  Receipt Date: 20180506
  Transmission Date: 20180711
  Serious: No
  Sender: FDA-Public Use
  Company Number: US-AMGEN-USASL2018045053

PATIENT
  Age: 34 Year
  Sex: Female
  Weight: 72.56 kg

DRUGS (2)
  1. ENBREL [Suspect]
     Active Substance: ETANERCEPT
     Indication: PSORIASIS
     Dosage: 50 MG, 2 TIMES/WK
     Route: 065
     Dates: start: 20180302
  2. FLEXERIL [Concomitant]
     Active Substance: CYCLOBENZAPRINE HYDROCHLORIDE
     Indication: MYALGIA
     Dosage: 5 MG, AS NECESSARY
     Dates: start: 2016

REACTIONS (7)
  - Intentional product misuse [Unknown]
  - Injection site macule [Unknown]
  - Pruritus generalised [Recovered/Resolved]
  - Injection site warmth [Unknown]
  - Injection site pruritus [Unknown]
  - Insomnia [Unknown]
  - Injection site erythema [Unknown]

NARRATIVE: CASE EVENT DATE: 2018
